FAERS Safety Report 6780374-7 (Version None)
Quarter: 2010Q2

REPORT INFORMATION
  Report Type: 
  Country: None (occurrence: None)
  Receive Date: 20100618
  Receipt Date: 20100607
  Transmission Date: 20101027
  Serious: Yes (Other)
  Sender: FDA-Public Use
  Company Number: US-WYE-H15647210

PATIENT

DRUGS (1)
  1. VENLAFAXINE HYDROCHLORIDE [Suspect]
     Dosage: OVERDOSE AMOUNT UNKNOWN

REACTIONS (2)
  - ENDOTRACHEAL INTUBATION [None]
  - INTENTIONAL OVERDOSE [None]
